FAERS Safety Report 6220142-8 (Version None)
Quarter: 2009Q2

REPORT INFORMATION
  Report Type: 
  Country: None (occurrence: None)
  Receive Date: 20090609
  Receipt Date: 20090529
  Transmission Date: 20091009
  Serious: Yes (Other)
  Sender: FDA-Public Use
  Company Number: US-JNJCH-2009015344

PATIENT

DRUGS (1)
  1. ASPIRIN [Suspect]
     Indication: THROMBOSIS PROPHYLAXIS
     Dosage: TEXT:162 MG ONCE DAILY
     Route: 065

REACTIONS (1)
  - HAEMORRHAGIC TRANSFORMATION STROKE [None]
